FAERS Safety Report 12435005 (Version 1)
Quarter: 2016Q2

REPORT INFORMATION
  Report Type: Spontaneous
  Country: US (occurrence: US)
  Receive Date: 20160603
  Receipt Date: 20160603
  Transmission Date: 20160815
  Serious: No
  Sender: FDA-Public Use
  Company Number: US-ROCHE-1655292

PATIENT
  Age: 85 Year
  Sex: Female

DRUGS (6)
  1. LEVOTHYROXINE. [Concomitant]
     Active Substance: LEVOTHYROXINE
  2. KLONOPIN [Suspect]
     Active Substance: CLONAZEPAM
     Indication: ANXIETY
  3. COLACE [Concomitant]
     Active Substance: DOCUSATE SODIUM
  4. PROTONIX [Concomitant]
     Active Substance: PANTOPRAZOLE SODIUM
     Indication: GASTRIC PH DECREASED
  5. KLONOPIN [Suspect]
     Active Substance: CLONAZEPAM
     Indication: DEMENTIA
     Route: 065
     Dates: start: 201501
  6. SODIUM CHLORIDE. [Concomitant]
     Active Substance: SODIUM CHLORIDE
     Indication: BLOOD SODIUM DECREASED

REACTIONS (4)
  - Dementia [Unknown]
  - Aggression [Unknown]
  - Somnolence [Unknown]
  - Drug dose omission [Unknown]
